FAERS Safety Report 6012574-8 (Version None)
Quarter: 2008Q4

REPORT INFORMATION
  Report Type: 
  Country: None (occurrence: None)
  Receive Date: 20081218
  Receipt Date: 20010822
  Transmission Date: 20090506
  Serious: Yes (Death, Other)
  Sender: FDA-Public Use
  Company Number: SE-GENENTECH-096322

PATIENT
  Age: 33 Year
  Sex: Female

DRUGS (3)
  1. HERCEPTIN [Suspect]
     Indication: BREAST CANCER
     Route: 065
     Dates: start: 20000301, end: 20000315
  2. TAVEGYL [Concomitant]
     Indication: DRUG USE FOR UNKNOWN INDICATION
  3. ALVEDON [Concomitant]
     Indication: DRUG USE FOR UNKNOWN INDICATION

REACTIONS (3)
  - DEATH [None]
  - DYSPNOEA [None]
  - NEOPLASM PROGRESSION [None]
